FAERS Safety Report 9937347 (Version 1)
Quarter: 2014Q1

REPORT INFORMATION
  Report Type: Report from Study
  Country: US (occurrence: US)
  Receive Date: 20140303
  Receipt Date: 20140303
  Transmission Date: 20141002
  Serious: Yes (Other)
  Sender: FDA-Public Use
  Company Number: US-ROCHE-1356066

PATIENT
  Age: 52 Year
  Sex: Male
  Weight: 90.8 kg

DRUGS (10)
  1. XOLAIR [Suspect]
     Indication: ASTHMA
     Dosage: 3 INJECTION TWICE A MONTH
     Route: 065
  2. ALEVE [Concomitant]
     Indication: PAIN
     Route: 048
  3. TIZANIDINE HCL [Concomitant]
     Route: 048
  4. NEXIUM [Concomitant]
     Route: 048
  5. TAMSULOSIN HCL [Concomitant]
     Route: 048
  6. KLOR-CON [Concomitant]
     Route: 048
  7. SINGULAIR [Concomitant]
     Indication: ASTHMA
     Route: 065
  8. LYRICA [Concomitant]
     Indication: BACK PAIN
     Route: 065
  9. METOPROLOL TARTRATE [Concomitant]
     Indication: BLOOD PRESSURE
     Route: 065
  10. MONTELUKAST SODIUM [Concomitant]
     Indication: ASTHMA
     Route: 065

REACTIONS (6)
  - Anaphylactic reaction [Unknown]
  - Dyspnoea [Unknown]
  - Arthralgia [Unknown]
  - Hypoaesthesia [Unknown]
  - Viral infection [Unknown]
  - Oropharyngeal pain [Unknown]
